FAERS Safety Report 17080350 (Version 1)
Quarter: 2019Q4

REPORT INFORMATION
  Report Type: Spontaneous
  Country: GB (occurrence: GB)
  Receive Date: 20191127
  Receipt Date: 20191127
  Transmission Date: 20200122
  Serious: Yes (Other)
  Sender: FDA-Public Use
  Company Number: GB-TEVA-2019-GB-1141728

PATIENT
  Age: 14 Year
  Sex: Male
  Weight: 44.45 kg

DRUGS (5)
  1. LORATADINE. [Suspect]
     Active Substance: LORATADINE
     Indication: SEASONAL ALLERGY
     Dosage: 10 MG,DAILY
     Route: 048
     Dates: start: 2010, end: 201808
  2. CETIRIZINE [Suspect]
     Active Substance: CETIRIZINE HYDROCHLORIDE
     Indication: SEASONAL ALLERGY
     Dosage: 10 MG PER DAY
     Route: 048
     Dates: start: 2010, end: 201808
  3. SALAMOL [Concomitant]
     Active Substance: ALBUTEROL
  4. FLUTICASONE PROPIONATE. [Concomitant]
     Active Substance: FLUTICASONE PROPIONATE
  5. CLENIL MODULITE [Concomitant]
     Active Substance: BECLOMETHASONE DIPROPIONATE

REACTIONS (7)
  - Disturbance in attention [Recovering/Resolving]
  - Panic attack [Recovering/Resolving]
  - Social avoidant behaviour [Recovering/Resolving]
  - Obsessive-compulsive disorder [Recovering/Resolving]
  - Anxiety [Recovering/Resolving]
  - Mood altered [Recovering/Resolving]
  - Depression [Recovering/Resolving]
